FAERS Safety Report 17715810 (Version 2)
Quarter: 2020Q2

REPORT INFORMATION
  Report Type: Report from Study
  Country: None (occurrence: FR)
  Receive Date: 20200428
  Receipt Date: 20200629
  Transmission Date: 20200714
  Serious: Yes (Hospitalization)
  Sender: FDA-Public Use
  Company Number: FR-ABBVIE-20K-056-3379479-00

PATIENT
  Age: 59 Year
  Sex: Male
  Weight: 47 kg

DRUGS (12)
  1. ADALIMUMAB [Suspect]
     Active Substance: ADALIMUMAB
     Indication: COLITIS ULCERATIVE
     Route: 058
     Dates: start: 20181001, end: 20181124
  2. BACTRIM [Concomitant]
     Active Substance: SULFAMETHOXAZOLE\TRIMETHOPRIM
     Indication: ANTIBIOTIC THERAPY
     Route: 048
  3. BURINEX [Concomitant]
     Active Substance: BUMETANIDE
     Indication: DIURETIC THERAPY
     Dosage: X1
     Route: 048
  4. KARDEGIC [Concomitant]
     Active Substance: ASPIRIN DL-LYSINE
     Indication: ANTICOAGULANT THERAPY
     Dosage: X1
     Route: 048
  5. LAMALINE (CAFFEINE\PARACETAMOL\ATROPA BELLADONNA EXTRACT\PAPAVER SOMNIFERUM TINCTURE) [Suspect]
     Active Substance: ACETAMINOPHEN\BELLADONNA LEAF\CAFFEINE\OPIUM
     Indication: PRODUCT USED FOR UNKNOWN INDICATION
     Route: 065
  6. SERETIDE [Concomitant]
     Active Substance: FLUTICASONE PROPIONATE\SALMETEROL XINAFOATE
     Indication: BRONCHOPNEUMOPATHY
     Dosage: X1
     Route: 048
  7. SPIRONOLACTONE. [Concomitant]
     Active Substance: SPIRONOLACTONE
     Indication: HYPOKALAEMIA
     Dosage: X1
     Route: 048
  8. LASILIX [Concomitant]
     Active Substance: FUROSEMIDE
     Indication: DIURETIC THERAPY
     Dosage: X1
     Route: 048
  9. IMUREL [Concomitant]
     Active Substance: AZATHIOPRINE SODIUM
     Indication: PRODUCT USED FOR UNKNOWN INDICATION
     Dosage: X1
     Route: 048
     Dates: start: 20110301
  10. AIROMIR [Concomitant]
     Active Substance: ALBUTEROL SULFATE
     Indication: RESPIRATORY FAILURE
     Dosage: X1
     Route: 048
  11. SPORANOX [Concomitant]
     Active Substance: ITRACONAZOLE
     Indication: ANTIFUNGAL TREATMENT
     Dosage: X1
     Route: 048
  12. SPIRIVA [Concomitant]
     Active Substance: TIOTROPIUM BROMIDE MONOHYDRATE
     Indication: DRUG THERAPY
     Dosage: X1
     Route: 048

REACTIONS (8)
  - Seizure [Not Recovered/Not Resolved]
  - Inflammation [Not Recovered/Not Resolved]
  - Aspergillus infection [Not Recovered/Not Resolved]
  - Insomnia [Not Recovered/Not Resolved]
  - Confusional state [Not Recovered/Not Resolved]
  - Pseudomonas infection [Not Recovered/Not Resolved]
  - Herpes simplex [Not Recovered/Not Resolved]
  - Chronic obstructive pulmonary disease [Not Recovered/Not Resolved]

NARRATIVE: CASE EVENT DATE: 20181124
